FAERS Safety Report 4512663-0 (Version None)
Quarter: 2004Q4

REPORT INFORMATION
  Report Type: 
  Country: None (occurrence: None)
  Receive Date: 20041124
  Receipt Date: 20041119
  Transmission Date: 20050328
  Serious: Yes (Death)
  Sender: FDA-Public Use
  Company Number: S04-USA-04733-01

PATIENT
  Age: 15 Year
  Sex: Female
  Weight: 59.8748 kg

DRUGS (2)
  1. BENZONATATE [Suspect]
  2. ALCOHOL [Suspect]
     Dates: end: 20040729

REACTIONS (2)
  - COMPLETED SUICIDE [None]
  - INTENTIONAL OVERDOSE [None]
